FAERS Safety Report 7638735-X (Version None)
Quarter: 2011Q3

REPORT INFORMATION
  Report Type: 
  Country: None (occurrence: None)
  Receive Date: 20110727
  Receipt Date: 20110720
  Transmission Date: 20111222
  Serious: Yes (Hospitalization, Other)
  Sender: FDA-Public Use
  Company Number: RO-ROCHE-688997

PATIENT
  Sex: Female
  Weight: 73 kg

DRUGS (14)
  1. CYCLOPHOSPHAMIDE [Concomitant]
     Indication: NON-HODGKIN'S LYMPHOMA
     Dosage: DURATION: FOR 2 DAYS
     Route: 042
     Dates: start: 20100322, end: 20100323
  2. VINCRISTINE [Concomitant]
     Route: 042
     Dates: start: 20100402, end: 20100403
  3. PREDNISONE TAB [Concomitant]
     Indication: NON-HODGKIN'S LYMPHOMA
     Dosage: DURATION: FOR 2 DAYS
     Route: 048
     Dates: start: 20100322, end: 20100323
  4. METAMIZOLE SODIUM [Concomitant]
     Dosage: FREQUENCY: OCCASIONALLY; DRUG REPORTED AS METAMIZOLE
     Route: 042
     Dates: start: 20100219, end: 20100219
  5. CYCLOPHOSPHAMIDE [Concomitant]
     Route: 042
     Dates: start: 20100402, end: 20100403
  6. PEGINTERFERON ALFA-2A [Suspect]
     Indication: HEPATITIS C
     Route: 058
     Dates: start: 20100119, end: 20100330
  7. CLORFENAMINA [Concomitant]
     Dates: start: 20100220, end: 20100222
  8. PREDNISONE TAB [Concomitant]
     Route: 048
     Dates: start: 20100402
  9. RIBAVIRIN [Suspect]
     Route: 048
     Dates: end: 20100330
  10. MABTHERA [Concomitant]
     Route: 042
  11. MABTHERA [Concomitant]
     Indication: NON-HODGKIN'S LYMPHOMA
     Route: 042
     Dates: start: 20100129
  12. RIBAVIRIN [Suspect]
     Indication: HEPATITIS C
     Route: 048
     Dates: start: 20100119
  13. DEXAMETHASONE [Concomitant]
     Dates: start: 20100220, end: 20100222
  14. VINCRISTINE [Concomitant]
     Indication: NON-HODGKIN'S LYMPHOMA
     Dosage: DURATION: FOR 1 DAY
     Route: 042
     Dates: start: 20100322, end: 20100323

REACTIONS (5)
  - CARDIAC FAILURE CONGESTIVE [None]
  - SEPSIS [None]
  - NEPHROTIC SYNDROME [None]
  - RENAL FAILURE ACUTE [None]
  - ASCITES [None]
